FAERS Safety Report 10453466 (Version 1)
Quarter: 2014Q3

REPORT INFORMATION
  Report Type: Report from Study
  Country: ES (occurrence: ES)
  Receive Date: 20140915
  Receipt Date: 20140915
  Transmission Date: 20150326
  Serious: Yes (Death)
  Sender: FDA-Public Use
  Company Number: ES-ASTRAZENECA-2014SE68283

PATIENT
  Age: 31 Year
  Sex: Male

DRUGS (3)
  1. CITALOPREM [Concomitant]
  2. MORPHINE [Concomitant]
     Active Substance: MORPHINE
  3. QUETIAPINE [Suspect]
     Active Substance: QUETIAPINE
     Route: 048

REACTIONS (3)
  - Completed suicide [Fatal]
  - Poisoning [Fatal]
  - Overdose [Fatal]
